FAERS Safety Report 9397390 (Version 1)
Quarter: 2013Q3

REPORT INFORMATION
  Report Type: Spontaneous
  Country: BR (occurrence: BR)
  Receive Date: 20130712
  Receipt Date: 20130712
  Transmission Date: 20140515
  Serious: Yes (Other)
  Sender: FDA-Public Use
  Company Number: BR-SANOFI-AVENTIS-2013SA069159

PATIENT
  Age: 44 Year
  Sex: Female

DRUGS (6)
  1. LANTUS [Suspect]
     Indication: TYPE 2 DIABETES MELLITUS
     Route: 058
     Dates: start: 2008
  2. PREDNISONE [Suspect]
     Indication: RENAL DISORDER
     Route: 048
     Dates: start: 201305
  3. TACROLIMUS [Concomitant]
     Indication: RENAL DISORDER
     Dosage: STRENGTH: 1 MG
     Route: 048
     Dates: start: 201305
  4. MYFORTIC [Concomitant]
     Indication: RENAL DISORDER
     Dosage: STRENGTH: 360 MG
     Route: 048
     Dates: start: 201305
  5. BACTRIM [Concomitant]
     Indication: ANTIBIOTIC THERAPY
     Dosage: STRENGTH: 400 MG
     Route: 048
     Dates: start: 201305
  6. AAS [Concomitant]
     Indication: CARDIOVASCULAR DISORDER
     Route: 048
     Dates: start: 201305

REACTIONS (5)
  - Renal failure chronic [Recovering/Resolving]
  - Retinopathy [Not Recovered/Not Resolved]
  - Cataract [Not Recovered/Not Resolved]
  - Hyperglycaemia [Unknown]
  - Hyperglycaemia [Unknown]
